FAERS Safety Report 6012564-5 (Version None)
Quarter: 2008Q4

REPORT INFORMATION
  Report Type: 
  Country: None (occurrence: None)
  Receive Date: 20081218
  Receipt Date: 20081216
  Transmission Date: 20090506
  Serious: Yes (Other)
  Sender: FDA-Public Use
  Company Number: MW-B.I. PHARMACEUTICALS,INC./RIDGEFIELD-2008-DE-07722GD

PATIENT

DRUGS (2)
  1. TRIOMUNE [Suspect]
     Indication: HIV INFECTION
     Route: 048
  2. COTRIMOXAZOLE [Concomitant]
     Indication: PROPHYLAXIS

REACTIONS (2)
  - IMMUNE RECONSTITUTION SYNDROME [None]
  - TUBERCULOSIS [None]
